FAERS Safety Report 7474920-8 (Version None)
Quarter: 2011Q2

REPORT INFORMATION
  Report Type: 
  Country: None (occurrence: None)
  Receive Date: 20110512
  Receipt Date: 20090930
  Transmission Date: 20111010
  Serious: Yes (Other)
  Sender: FDA-Public Use
  Company Number: US-BAYER-200934586NA

PATIENT
  Age: 73 Year
  Sex: Male
  Weight: 109.75 kg

DRUGS (35)
  1. TRASYLOL [Suspect]
     Dosage: 25ML/HOUR
     Route: 042
     Dates: start: 20011025, end: 20011025
  2. BENADRYL ALLERGY [DIPHENHYDRAMINE HYDROCHLORIDE] [Concomitant]
     Dosage: 25 MG, UNK
     Route: 042
     Dates: start: 20011023
  3. VERSED [Concomitant]
     Dosage: 2MG/2ML
     Route: 042
     Dates: start: 20011025
  4. FENTANYL [Concomitant]
     Dosage: UNK
     Route: 042
     Dates: start: 20011025
  5. INDERAL [Concomitant]
     Dosage: UNK
     Route: 042
     Dates: start: 20011025
  6. NITROGLYCERIN [Concomitant]
     Dosage: 0.4 MG/HR, UNK
     Dates: start: 20011022
  7. ACETAMINOPHEN [Concomitant]
     Dosage: 650 MG, UNK
     Route: 048
     Dates: start: 20011024
  8. TRASYLOL [Suspect]
     Indication: CORONARY ARTERY BYPASS
     Dosage: 1 ML, TEST DOSE
     Route: 042
     Dates: start: 20011025, end: 20011025
  9. TRASYLOL [Suspect]
     Dosage: 100 ML, BOLUS
     Route: 042
     Dates: start: 20011025, end: 20011025
  10. ACETYLSALICYLIC ACID SRT [Concomitant]
     Dosage: 81 MG, QD
     Route: 048
     Dates: start: 20011023
  11. ZOCOR [Concomitant]
     Dosage: 20 MG, QD
     Route: 048
     Dates: start: 20011023
  12. DIGOXIN [Concomitant]
     Dosage: 0.5 MG, UNK
     Route: 042
     Dates: start: 20011025
  13. RED BLOOD CELLS [Concomitant]
     Dosage: 3 U, UNK
     Dates: start: 20011025
  14. HEPARIN SODIUM [Concomitant]
     Dosage: 1000-7500 UNITS
     Route: 042
  15. FUROSEMIDE [Concomitant]
     Dosage: 40 MG/4 ML
     Route: 042
  16. VERSED [Concomitant]
     Dosage: 0.5 MG, UNK
     Route: 042
     Dates: start: 20011023
  17. VERSED [Concomitant]
  18. VANCOMYCIN [Concomitant]
     Dosage: 1 G, UNK
     Dates: start: 20011025
  19. ZINACEF [Concomitant]
     Dosage: 2.5 G, UNK
     Dates: start: 20011025
  20. CEFUROXIME [Concomitant]
     Dosage: 1.5 G, UNK
     Route: 042
     Dates: start: 20011025
  21. LACTULOSE [Concomitant]
     Dosage: UNK
     Route: 048
     Dates: start: 20011024
  22. SOLU-MEDROL [Concomitant]
     Dosage: UNK
     Dates: start: 20011025
  23. FRESH FROZEN PLASMA [Concomitant]
     Dosage: 2 U, UNK
     Dates: start: 20011025
  24. NITROGLYCERIN [Concomitant]
     Dosage: 25 MG/250 ML
     Route: 060
     Dates: start: 20011021
  25. METOPROLOL SUCCINATE [Concomitant]
     Dosage: 12.5 MG, BID, LONG TERM USE
     Route: 048
  26. PRINIVIL [Concomitant]
     Dosage: 5 MG, QD
     Route: 048
     Dates: start: 20011023
  27. VENTOLIN [BECLOMETASONE DIPROPIONATE,SALBUTAMOL] [Concomitant]
     Dosage: 6.88, INHALER
     Dates: start: 20011023
  28. LIPITOR [Concomitant]
     Dosage: 20 MG, QD, LONG TERM USE
     Route: 048
  29. PROCAINAMIDE [Concomitant]
     Dosage: 200 MG, UNK
     Dates: start: 20011025
  30. HUMALOG [Concomitant]
  31. NITROGLYCERIN [Concomitant]
     Dosage: 5 ?G, UNK
     Route: 042
     Dates: start: 20011021
  32. FENTANYL [Concomitant]
     Dosage: 25 ?G, UNK
     Route: 042
     Dates: start: 20011023
  33. GLYBURIDE [Concomitant]
     Dosage: 5 MG, QD, LONG TERM USE
     Route: 048
     Dates: start: 20011024
  34. AVAPRO [Concomitant]
     Dosage: 150 MG, QD, LONG TERM USE
     Route: 048
  35. HEPARIN [Concomitant]
     Dosage: 10000 U, UNK
     Route: 042
     Dates: start: 20011025

REACTIONS (4)
  - RENAL FAILURE ACUTE [None]
  - PAIN [None]
  - UNEVALUABLE EVENT [None]
  - INJURY [None]
